FAERS Safety Report 9467506 (Version 1)
Quarter: 2013Q3

REPORT INFORMATION
  Report Type: Spontaneous
  Country: US (occurrence: None)
  Receive Date: 20130819
  Receipt Date: 20130819
  Transmission Date: 20140515
  Serious: Yes (Hospitalization)
  Sender: FDA-Public Use
  Company Number: None

PATIENT
  Age: 16 Year
  Sex: Male
  Weight: 95 kg

DRUGS (2)
  1. IRINOTECAN [Suspect]
  2. VINCRISTINE SULFATE [Suspect]

REACTIONS (4)
  - Rash [None]
  - Rash maculo-papular [None]
  - Rash erythematous [None]
  - Pruritus [None]
